FAERS Safety Report 9277178 (Version 1)
Quarter: 2013Q2

REPORT INFORMATION
  Report Type: Spontaneous
  Country: US (occurrence: US)
  Receive Date: 20130508
  Receipt Date: 20130508
  Transmission Date: 20140414
  Serious: Yes (Other)
  Sender: FDA-Public Use
  Company Number: US-AMGEN-USASP2013031471

PATIENT
  Sex: Female

DRUGS (3)
  1. ENBREL [Suspect]
     Indication: ARTHRITIS
     Dosage: UNK
  2. OXYCONTIN [Concomitant]
     Dosage: UNK
  3. REMICADE [Concomitant]
     Dosage: UNK

REACTIONS (3)
  - Chronic obstructive pulmonary disease [Unknown]
  - Pulmonary mass [Unknown]
  - Pneumonia [Unknown]
